FAERS Safety Report 22714864 (Version 4)
Quarter: 2023Q4

REPORT INFORMATION
  Report Type: Spontaneous
  Country: JP (occurrence: JP)
  Receive Date: 20230718
  Receipt Date: 20231018
  Transmission Date: 20240110
  Serious: Yes (Hospitalization, Other)
  Sender: FDA-Public Use
  Company Number: JP-EXELIXIS-CABO-23065395

PATIENT
  Age: 81 Year
  Sex: Female
  Weight: 53.1 kg

DRUGS (8)
  1. CABOMETYX [Suspect]
     Active Substance: CABOZANTINIB S-MALATE
     Indication: Clear cell renal cell carcinoma
     Dosage: 40 MG, QD
     Route: 048
     Dates: start: 20230606, end: 20230619
  2. CABOMETYX [Suspect]
     Active Substance: CABOZANTINIB S-MALATE
     Dosage: 20 MG, QD
     Route: 048
     Dates: start: 20230620, end: 20230711
  3. OPDIVO [Suspect]
     Active Substance: NIVOLUMAB
     Indication: Clear cell renal cell carcinoma
     Dosage: 240 MG, Q2WEEKS
     Route: 065
     Dates: start: 20230606, end: 20230704
  4. LEVETIRACETAM [Concomitant]
     Active Substance: LEVETIRACETAM
     Indication: Epilepsy
     Dosage: 500 MILLIGRAM, BID
     Route: 065
     Dates: start: 20230517
  5. FEXOFENADINE HYDROCHLORIDE [Concomitant]
     Active Substance: FEXOFENADINE HYDROCHLORIDE
     Indication: Urticaria
     Dosage: 60 MILLIGRAM, BID
     Route: 065
     Dates: start: 20230523
  6. AMLODIPINE [Concomitant]
     Active Substance: AMLODIPINE BESYLATE
     Indication: Hypertension
     Dosage: 2.5 MILLIGRAM, QD
     Route: 065
     Dates: end: 20230711
  7. ELDECALCITOL [Concomitant]
     Active Substance: ELDECALCITOL
     Dosage: 0.75 UG, QD
     Route: 065
  8. CYMBALTA [Concomitant]
     Active Substance: DULOXETINE HYDROCHLORIDE
     Dosage: 40 MG, QD
     Route: 065

REACTIONS (12)
  - Altered state of consciousness [Recovered/Resolved]
  - Mobility decreased [Recovered/Resolved]
  - Deep vein thrombosis [Recovering/Resolving]
  - Asthenia [Recovered/Resolved]
  - Pneumonia aspiration [Recovered/Resolved]
  - Contusion [Unknown]
  - Bone contusion [Unknown]
  - Malaise [Not Recovered/Not Resolved]
  - Fall [Unknown]
  - Flank pain [Unknown]
  - Blood pressure increased [Recovering/Resolving]
  - Decreased appetite [Unknown]

NARRATIVE: CASE EVENT DATE: 20230601
